FAERS Safety Report 20598671 (Version 2)
Quarter: 2022Q1

REPORT INFORMATION
  Report Type: Spontaneous
  Country: US (occurrence: None)
  Receive Date: 20220315
  Receipt Date: 20220315
  Transmission Date: 20220423
  Serious: No
  Sender: FDA-Public Use
  Company Number: US-ROCHE-2939230

PATIENT
  Sex: Female
  Weight: 98.972 kg

DRUGS (6)
  1. XOLAIR [Suspect]
     Active Substance: OMALIZUMAB
     Indication: Migraine without aura
     Dosage: 150MG/ML
     Route: 058
     Dates: start: 20200115
  2. AZELAIC ACID [Concomitant]
     Active Substance: AZELAIC ACID
     Dates: start: 20200210, end: 20201124
  3. BACTRIM DS [Concomitant]
     Active Substance: SULFAMETHOXAZOLE\TRIMETHOPRIM
     Route: 048
     Dates: start: 20201006
  4. CALCIUM\VITAMIN D [Concomitant]
     Active Substance: CALCIUM\VITAMIN D
     Route: 048
     Dates: start: 20200210
  5. CHLORTHALIDONE [Concomitant]
     Active Substance: CHLORTHALIDONE
     Route: 048
     Dates: start: 20200611
  6. GABAPENTIN [Concomitant]
     Active Substance: GABAPENTIN
     Route: 048
     Dates: start: 20200210

REACTIONS (3)
  - Off label use [Unknown]
  - Phlebitis [Unknown]
  - Localised infection [Recovering/Resolving]
